FAERS Safety Report 15430159 (Version 2)
Quarter: 2018Q3

REPORT INFORMATION
  Report Type: Spontaneous
  Country: US (occurrence: US)
  Receive Date: 20180926
  Receipt Date: 20180926
  Transmission Date: 20181010
  Serious: Yes (Other)
  Sender: FDA-Public Use
  Company Number: US-CELGENEUS-USA-20180907829

PATIENT
  Age: 56 Year
  Sex: Female

DRUGS (1)
  1. OTEZLA [Suspect]
     Active Substance: APREMILAST
     Indication: PSORIATIC ARTHROPATHY
     Dosage: 60 MILLIGRAM
     Route: 048
     Dates: start: 20140805, end: 20140909

REACTIONS (6)
  - Headache [Unknown]
  - Eye swelling [Unknown]
  - Erythema [Unknown]
  - Burning sensation [Unknown]
  - Urticaria [Unknown]
  - Rash macular [Unknown]

NARRATIVE: CASE EVENT DATE: 20140925
